FAERS Safety Report 5780217-4 (Version None)
Quarter: 2008Q2

REPORT INFORMATION
  Report Type: 
  Country: None (occurrence: None)
  Receive Date: 20080620
  Receipt Date: 20080620
  Transmission Date: 20081010
  Serious: Yes (Death, Life-Threatening, Hospitalization, Disabling)
  Sender: FDA-Public Use
  Company Number: GB-ROCHE-545197

PATIENT
  Sex: Female
  Weight: 53 kg

DRUGS (12)
  1. BONIVA [Suspect]
     Indication: OSTEOPOROSIS
     Route: 040
     Dates: start: 20071106
  2. DILTIAZEM [Concomitant]
     Route: 048
  3. ASPIRIN [Concomitant]
     Route: 048
  4. CALCICHEW D3 FORTE [Concomitant]
     Route: 048
  5. CALCICHEW D3 FORTE [Concomitant]
     Route: 048
  6. GABAPENTIN [Concomitant]
     Route: 048
  7. OMEPRAZOLE [Concomitant]
     Route: 048
  8. PREDNISOLONE [Concomitant]
     Route: 048
  9. SIMVASTATIN [Concomitant]
     Route: 048
  10. MORPHINE SULFATE [Concomitant]
     Route: 048
  11. ORAMORPH SR [Concomitant]
     Route: 048
  12. RISEDRONATE SODIUM [Concomitant]
     Indication: OSTEOPOROSIS
     Route: 048
     Dates: end: 20071102

REACTIONS (3)
  - KYPHOSIS [None]
  - PNEUMONIA [None]
  - RESPIRATORY FAILURE [None]
